FAERS Safety Report 8124657-7 (Version None)
Quarter: 2012Q1

REPORT INFORMATION
  Report Type: 
  Country: None (occurrence: None)
  Receive Date: 20120209
  Receipt Date: 20120209
  Transmission Date: 20120608
  Serious: Yes (Hospitalization)
  Sender: FDA-Public Use
  Company Number: None

PATIENT
  Age: 18 Year
  Sex: Male
  Weight: 615.97 kg

DRUGS (1)
  1. SULFAMETHOXAZOLE AND TRIMETHOPRIM [Suspect]
     Indication: CELLULITIS
     Dosage: 1 TABLET
     Route: 048
     Dates: start: 20120119, end: 20120120

REACTIONS (4)
  - RASH GENERALISED [None]
  - STEVENS-JOHNSON SYNDROME [None]
  - BLISTER [None]
  - OEDEMA PERIPHERAL [None]
